FAERS Safety Report 22661744 (Version 5)
Quarter: 2023Q4

REPORT INFORMATION
  Report Type: Spontaneous
  Country: IN (occurrence: IN)
  Receive Date: 20230630
  Receipt Date: 20231006
  Transmission Date: 20240110
  Serious: Yes (Other)
  Sender: FDA-Public Use
  Company Number: IN-PFIZER INC-PV202300114034

PATIENT
  Age: 73 Year
  Sex: Female
  Weight: 51.4 kg

DRUGS (9)
  1. PALBOCICLIB [Suspect]
     Active Substance: PALBOCICLIB
     Indication: Breast cancer metastatic
     Dosage: 100 MG, CYCLIC (ONCE DAILY FOR 21 DAYS THEN 10 DAYS GAP X 6 MONTHS)
     Dates: start: 20210522
  2. PALBOCICLIB [Suspect]
     Active Substance: PALBOCICLIB
     Dosage: 100 MG OD
     Route: 048
  3. LETROZOLE [Suspect]
     Active Substance: LETROZOLE
     Indication: Breast cancer
     Dosage: 2.5 MG, 1X/DAY (ONCE DAILY X 3 MONTHS)
     Dates: start: 20210522
  4. CALCIUM CARBONATE\CHOLECALCIFEROL [Suspect]
     Active Substance: CALCIUM CARBONATE\CHOLECALCIFEROL
     Dosage: 500 MG, 1X/DAY (ONCE DAILY AFTER FOOD FOR 3 MONTHS)
  5. OXRA [Concomitant]
     Indication: Diabetes mellitus
     Dosage: 10 MG, 1X/DAY
  6. AMARYL-mForte [Concomitant]
     Indication: Diabetes mellitus
     Dosage: 1 MG, 1X/DAY
  7. Cilacard [Concomitant]
     Indication: Hypertension
     Dosage: UNK, 1X/DAY
  8. ROZAVEL [Concomitant]
     Indication: Hypertension
     Dosage: UNK, 1X/DAY
  9. NORTIPAN [Concomitant]
     Indication: Pain
     Dosage: UNK, 1X/DAY

REACTIONS (10)
  - Muscle rupture [Unknown]
  - Haemoglobin decreased [Not Recovered/Not Resolved]
  - White blood cell count decreased [Not Recovered/Not Resolved]
  - Platelet count decreased [Not Recovered/Not Resolved]
  - Alopecia [Unknown]
  - Blood pressure increased [Unknown]
  - Off label use [Unknown]
  - Heart rate increased [Unknown]
  - Body mass index increased [Unknown]
  - Arthralgia [Unknown]

NARRATIVE: CASE EVENT DATE: 20230301
